FAERS Safety Report 5154133-5 (Version None)
Quarter: 2006Q4

REPORT INFORMATION
  Report Type: 
  Country: None (occurrence: None)
  Receive Date: 20061120
  Receipt Date: 20061108
  Transmission Date: 20070319
  Serious: Yes (Hospitalization)
  Sender: FDA-Public Use
  Company Number: US-ROCHE-470736

PATIENT
  Age: 66 Year
  Sex: Female
  Weight: 48.1 kg

DRUGS (6)
  1. BONIVA [Suspect]
     Indication: OSTEOPOROSIS
     Route: 048
     Dates: start: 20050615, end: 20050615
  2. BONIVA [Suspect]
     Dosage: STRENGTH AND FORMULATION REPORTED AS 150 MG TABLETS. THE PATIENT TOOK A SINGLE DOSE.
     Route: 048
     Dates: start: 20061016, end: 20061016
  3. PRINIVIL [Concomitant]
     Dosage: DOSAGE REGIMEN REPORTED AS 20/12 MG.
     Route: 048
  4. MEVACOR [Concomitant]
     Route: 048
  5. ASPIRIN [Concomitant]
     Route: 048
  6. PLAVIX [Concomitant]
     Dosage: DOSAGE REGIMEN REPORTED AS 75 MG DAILY (INDICATION: PERIPHERAL VACULAR DISEASE) AND 100 MG TWICE PE+
     Route: 048

REACTIONS (2)
  - CHEST PAIN [None]
  - DYSPHAGIA [None]
